FAERS Safety Report 4990265-X (Version None)
Quarter: 2006Q2

REPORT INFORMATION
  Report Type: 
  Country: None (occurrence: None)
  Receive Date: 20060503
  Receipt Date: 20060501
  Transmission Date: 20061013
  Serious: Yes (Other)
  Sender: FDA-Public Use
  Company Number: CA-GLAXOSMITHKLINE-A0604041A

PATIENT
  Age: 77 Year
  Sex: Male

DRUGS (4)
  1. AVANDIA [Suspect]
     Indication: DRUG USE FOR UNKNOWN INDICATION
     Dosage: 8MG PER DAY
     Route: 048
  2. ASPIRIN [Concomitant]
  3. GLYBURIDE [Concomitant]
  4. LIPITOR [Concomitant]

REACTIONS (3)
  - COUGH [None]
  - DYSPNOEA [None]
  - LUNG INFILTRATION [None]
